FAERS Safety Report 12422050 (Version 1)
Quarter: 2016Q2

REPORT INFORMATION
  Report Type: Spontaneous
  Country: CA (occurrence: CA)
  Receive Date: 20160531
  Receipt Date: 20160531
  Transmission Date: 20160815
  Serious: Yes (Death, Hospitalization, Other)
  Sender: FDA-Public Use
  Company Number: CA-APOTEX-2016AP008776

PATIENT
  Age: 59 Year
  Sex: Male

DRUGS (2)
  1. APO-HALOPERIDOL [Suspect]
     Active Substance: HALOPERIDOL
     Indication: BIPOLAR DISORDER
     Dosage: 2 MG, TID
     Route: 065
  2. BENZATROPINE [Concomitant]
     Active Substance: BENZTROPINE
     Indication: BIPOLAR DISORDER
     Dosage: UNK, UNKNOWN
     Route: 065

REACTIONS (3)
  - Parkinsonism [Fatal]
  - Acute pulmonary oedema [Fatal]
  - Unmasking of previously unidentified disease [Fatal]

NARRATIVE: CASE EVENT DATE: 197705
